FAERS Safety Report 5117707-3 (Version None)
Quarter: 2006Q3

REPORT INFORMATION
  Report Type: 
  Country: None (occurrence: None)
  Receive Date: 20060926
  Receipt Date: 20060905
  Transmission Date: 20061208
  Serious: Yes (Other)
  Sender: FDA-Public Use
  Company Number: DE200609001101

PATIENT
  Age: 22 Year
  Sex: Female

DRUGS (3)
  1. OLANZAPINE [Suspect]
     Indication: ANXIETY
     Dosage: 2.5 MG,
  2. PAROXETINE [Concomitant]
  3. LITHIUM (LITHIUM) [Concomitant]

REACTIONS (5)
  - ANXIETY [None]
  - DRUG INTERACTION [None]
  - DRUG LEVEL DECREASED [None]
  - INTENTIONAL DRUG MISUSE [None]
  - OCULOGYRATION [None]
